FAERS Safety Report 9670058 (Version 1)
Quarter: 2013Q4

REPORT INFORMATION
  Report Type: Spontaneous
  Country: US (occurrence: US)
  Receive Date: 20131105
  Receipt Date: 20131105
  Transmission Date: 20140711
  Serious: Yes (Hospitalization)
  Sender: FDA-Public Use
  Company Number: US-BAXTER-2013BAX042950

PATIENT
  Sex: Female

DRUGS (2)
  1. DIANEAL PD2 [Suspect]
     Indication: PERITONEAL DIALYSIS
     Route: 033
     Dates: start: 201305
  2. EXTRANEAL [Suspect]
     Indication: PERITONEAL DIALYSIS
     Route: 033
     Dates: start: 201308

REACTIONS (3)
  - Decreased appetite [Unknown]
  - Constipation [Unknown]
  - Peritonitis [Recovered/Resolved]
